FAERS Safety Report 19055168 (Version 1)
Quarter: 2021Q1

REPORT INFORMATION
  Report Type: Spontaneous
  Country: US (occurrence: US)
  Receive Date: 20210325
  Receipt Date: 20210325
  Transmission Date: 20210420
  Serious: No
  Sender: FDA-Public Use
  Company Number: US-BAYER-2021-111643

PATIENT
  Sex: Female

DRUGS (2)
  1. ALEVE [Suspect]
     Active Substance: NAPROXEN SODIUM
     Indication: DRUG THERAPY
     Dosage: UNK
  2. BAYER LOW DOSE [Suspect]
     Active Substance: ASPIRIN
     Indication: CARDIAC DISORDER
     Dosage: UNK

REACTIONS (3)
  - Product use in unapproved indication [Unknown]
  - Drug hypersensitivity [Unknown]
  - Urticaria [Unknown]
